FAERS Safety Report 10061364 (Version 1)
Quarter: 2014Q2

REPORT INFORMATION
  Report Type: Spontaneous
  Country: HU (occurrence: HU)
  Receive Date: 20140407
  Receipt Date: 20140407
  Transmission Date: 20141212
  Serious: Yes (Death, Other)
  Sender: FDA-Public Use
  Company Number: HU-JNJFOC-20140317349

PATIENT
  Age: 58 Year
  Sex: Male

DRUGS (1)
  1. ZYTIGA [Suspect]
     Indication: PROSTATE CANCER METASTATIC
     Route: 048
     Dates: start: 201307

REACTIONS (5)
  - Septic shock [Fatal]
  - Cardiac failure [Unknown]
  - Sepsis [Unknown]
  - Bronchiolitis [Unknown]
  - Bronchitis [Unknown]
